FAERS Safety Report 20727522 (Version 1)
Quarter: 2022Q2

REPORT INFORMATION
  Report Type: Spontaneous
  Country: US (occurrence: None)
  Receive Date: 20220419
  Receipt Date: 20220419
  Transmission Date: 20220721
  Serious: No
  Sender: FDA-Public Use
  Company Number: US-ROCHE-2777335

PATIENT
  Age: 71 Year
  Sex: Male

DRUGS (19)
  1. AVASTIN [Suspect]
     Active Substance: BEVACIZUMAB
     Indication: Type 2 diabetes mellitus
     Dosage: LEFT EYE ONLY (1.25 MG/0.05 ML)
     Route: 050
     Dates: start: 20201230
  2. AVASTIN [Suspect]
     Active Substance: BEVACIZUMAB
     Indication: Diabetic retinopathy
     Dosage: LEFT EYE ONLY
     Route: 050
     Dates: start: 20210127
  3. AVASTIN [Suspect]
     Active Substance: BEVACIZUMAB
     Indication: Macular oedema
  4. OMEPRAZOLE [Concomitant]
     Active Substance: OMEPRAZOLE
     Indication: Gastrooesophageal reflux disease
  5. LISINOPRIL [Concomitant]
     Active Substance: LISINOPRIL
     Indication: Hypertension
  6. TRESIBA [Concomitant]
     Active Substance: INSULIN DEGLUDEC
  7. OZEMPIC [Concomitant]
     Active Substance: SEMAGLUTIDE
  8. METHIMAZOLE [Concomitant]
     Active Substance: METHIMAZOLE
  9. EXTRA STRENGTH TYLENOL PM [Concomitant]
     Active Substance: ACETAMINOPHEN\DIPHENHYDRAMINE HYDROCHLORIDE
  10. OXYCODONE [Concomitant]
     Active Substance: OXYCODONE
     Dosage: 10/325
  11. VIAGRA [Concomitant]
     Active Substance: SILDENAFIL CITRATE
  12. PRAVASTATIN [Concomitant]
     Active Substance: PRAVASTATIN
  13. CYANOCOBALAMIN\DEXPANTHENOL\NIACINAMIDE\PYRIDOXINE HYDROCHLORIDE\RIBOF [Concomitant]
     Active Substance: CYANOCOBALAMIN\DEXPANTHENOL\NIACINAMIDE\PYRIDOXINE HYDROCHLORIDE\RIBOFLAVIN 5^-PHOSPHATE SODIUM\THIA
  14. MAGNESIUM [Concomitant]
     Active Substance: MAGNESIUM
  15. NICOTINAMIDE [Concomitant]
     Active Substance: NIACINAMIDE
  16. VICKS NYQUIL [Concomitant]
     Active Substance: ACETAMINOPHEN\DEXTROMETHORPHAN HYDROBROMIDE\DOXYLAMINE SUCCINATE
     Dosage: AT BEDTIME
  17. CARVEDILOL [Concomitant]
     Active Substance: CARVEDILOL
  18. INFLUENZA VIRUS VACCINE [Concomitant]
     Active Substance: INFLUENZA VIRUS VACCINE
  19. PNEUMOCOCCAL VACCINE POLYVALENT NOS [Concomitant]
     Active Substance: PNEUMOCOCCAL VACCINE POLYVALENT

REACTIONS (3)
  - Off label use [Unknown]
  - Intentional product use issue [Unknown]
  - No adverse event [Unknown]

NARRATIVE: CASE EVENT DATE: 20201230
